FAERS Safety Report 9591593 (Version 1)
Quarter: 2013Q4

REPORT INFORMATION
  Report Type: Spontaneous
  Country: US (occurrence: US)
  Receive Date: 20131003
  Receipt Date: 20131003
  Transmission Date: 20140711
  Serious: No
  Sender: FDA-Public Use
  Company Number: US-AMGEN-USASP2012081935

PATIENT
  Age: 51 Year
  Sex: Female

DRUGS (2)
  1. ENBREL [Suspect]
     Indication: PSORIATIC ARTHROPATHY
     Dosage: 50 MG, BIW
     Dates: start: 20121109
  2. ENBREL [Suspect]
     Indication: PSORIASIS

REACTIONS (6)
  - Arthralgia [Not Recovered/Not Resolved]
  - Local swelling [Not Recovered/Not Resolved]
  - Skin exfoliation [Not Recovered/Not Resolved]
  - Injection site pain [Recovered/Resolved]
  - Injection site erythema [Not Recovered/Not Resolved]
  - Psoriasis [Not Recovered/Not Resolved]
